FAERS Safety Report 5763929-8 (Version None)
Quarter: 2008Q2

REPORT INFORMATION
  Report Type: 
  Country: None (occurrence: None)
  Receive Date: 20080606
  Receipt Date: 20080606
  Transmission Date: 20081010
  Serious: Yes (Hospitalization)
  Sender: FDA-Public Use
  Company Number: None

PATIENT
  Age: 58 Year
  Sex: Male
  Weight: 80.4 kg

DRUGS (2)
  1. FLUDARABINE PHOSPHATE [Suspect]
     Dosage: 60 MG DAILY IV/OVER 30 MINS
     Route: 042
     Dates: start: 20080430, end: 20080504
  2. MELPHALAN [Suspect]
     Dosage: 140 MG DAILY IV/OVER 30 MINS
     Route: 042
     Dates: start: 20080503, end: 20080504

REACTIONS (5)
  - ARRHYTHMIA [None]
  - ATRIAL FLUTTER [None]
  - DIARRHOEA [None]
  - GRAFT VERSUS HOST DISEASE [None]
  - PYREXIA [None]
